FAERS Safety Report 12569710 (Version 1)
Quarter: 2016Q3

REPORT INFORMATION
  Report Type: Spontaneous
  Country: US (occurrence: None)
  Receive Date: 20160718
  Receipt Date: 20160718
  Transmission Date: 20161109
  Serious: No
  Sender: FDA-Public Use
  Company Number: None

PATIENT
  Age: 51 Year
  Sex: Female
  Weight: 68.04 kg

DRUGS (2)
  1. CORTISONE [Suspect]
     Active Substance: CORTISONE\HYDROCORTISONE
  2. BENADRYL [Suspect]
     Active Substance: DIPHENHYDRAMINE HYDROCHLORIDE

REACTIONS (7)
  - Rash [None]
  - Hypersensitivity [None]
  - Fatigue [None]
  - Erythema [None]
  - Pruritus [None]
  - Pain in extremity [None]
  - Burning sensation [None]

NARRATIVE: CASE EVENT DATE: 20160713
